FAERS Safety Report 24677808 (Version 1)
Quarter: 2024Q4

REPORT INFORMATION
  Report Type: Report from Study
  Country: JP (occurrence: JP)
  Receive Date: 20241129
  Receipt Date: 20241129
  Transmission Date: 20250115
  Serious: Yes (Other)
  Sender: ALEXION PHARMACEUTICALS
  Company Number: JP-ASTRAZENECA-240132241_032320_P_1

PATIENT
  Age: 59 Year
  Weight: 88 kg

DRUGS (58)
  1. ANIFROLUMAB [Suspect]
     Active Substance: ANIFROLUMAB
     Indication: Systemic lupus erythematosus
     Dosage: 300 MILLIGRAM, QW
  2. ANIFROLUMAB [Suspect]
     Active Substance: ANIFROLUMAB
     Dosage: 300 MILLIGRAM, QW
  3. ANIFROLUMAB [Suspect]
     Active Substance: ANIFROLUMAB
     Dosage: 300 MILLIGRAM, QW
  4. ANIFROLUMAB [Suspect]
     Active Substance: ANIFROLUMAB
     Dosage: 300 MILLIGRAM, QW
  5. ANIFROLUMAB [Suspect]
     Active Substance: ANIFROLUMAB
     Dosage: 300 MILLIGRAM, QW
  6. ANIFROLUMAB [Suspect]
     Active Substance: ANIFROLUMAB
     Dosage: 300 MILLIGRAM, QW
  7. PREDNISOLONE [Suspect]
     Active Substance: PREDNISOLONE
     Indication: Systemic lupus erythematosus
     Dosage: NUMBER OF SEPARATE DOSAGES UNKNOWN
  8. PREDNISOLONE [Suspect]
     Active Substance: PREDNISOLONE
     Dosage: NUMBER OF SEPARATE DOSAGES UNKNOWN
  9. PREDNISOLONE [Suspect]
     Active Substance: PREDNISOLONE
     Dosage: NUMBER OF SEPARATE DOSAGES UNKNOWN
  10. PREDNISOLONE [Suspect]
     Active Substance: PREDNISOLONE
     Dosage: NUMBER OF SEPARATE DOSAGES UNKNOWN
  11. PREDNISOLONE [Suspect]
     Active Substance: PREDNISOLONE
     Dosage: NUMBER OF SEPARATE DOSAGES UNKNOWN
  12. PREDNISOLONE [Suspect]
     Active Substance: PREDNISOLONE
     Dosage: NUMBER OF SEPARATE DOSAGES UNKNOWN
  13. PREDNISOLONE [Suspect]
     Active Substance: PREDNISOLONE
     Dosage: NUMBER OF SEPARATE DOSAGES UNKNOWN
  14. PREDNISOLONE [Suspect]
     Active Substance: PREDNISOLONE
     Dosage: NUMBER OF SEPARATE DOSAGES UNKNOWN
  15. PREDNISOLONE [Suspect]
     Active Substance: PREDNISOLONE
     Dosage: NUMBER OF SEPARATE DOSAGES UNKNOWN
  16. PREDNISOLONE [Suspect]
     Active Substance: PREDNISOLONE
     Dosage: NUMBER OF SEPARATE DOSAGES UNKNOWN
  17. PREDNISOLONE [Suspect]
     Active Substance: PREDNISOLONE
     Dosage: NUMBER OF SEPARATE DOSAGES UNKNOWN
  18. PREDNISOLONE [Suspect]
     Active Substance: PREDNISOLONE
     Dosage: NUMBER OF SEPARATE DOSAGES UNKNOWN
  19. BETAMETHASONE [Suspect]
     Active Substance: BETAMETHASONE
     Indication: Systemic lupus erythematosus
     Dosage: NUMBER OF SEPARATE DOSAGES UNKNOWN
  20. BETAMETHASONE [Suspect]
     Active Substance: BETAMETHASONE
     Dosage: NUMBER OF SEPARATE DOSAGES UNKNOWN
  21. BETAMETHASONE [Suspect]
     Active Substance: BETAMETHASONE
     Dosage: NUMBER OF SEPARATE DOSAGES UNKNOWN
  22. BETAMETHASONE [Suspect]
     Active Substance: BETAMETHASONE
     Dosage: NUMBER OF SEPARATE DOSAGES UNKNOWN
  23. BETAMETHASONE [Suspect]
     Active Substance: BETAMETHASONE
     Dosage: NUMBER OF SEPARATE DOSAGES UNKNOWN
  24. BETAMETHASONE [Suspect]
     Active Substance: BETAMETHASONE
     Dosage: NUMBER OF SEPARATE DOSAGES UNKNOWN
  25. BETAMETHASONE [Suspect]
     Active Substance: BETAMETHASONE
     Dosage: NUMBER OF SEPARATE DOSAGES UNKNOWN
  26. BETAMETHASONE [Suspect]
     Active Substance: BETAMETHASONE
     Dosage: NUMBER OF SEPARATE DOSAGES UNKNOWN
  27. BETAMETHASONE [Suspect]
     Active Substance: BETAMETHASONE
     Dosage: NUMBER OF SEPARATE DOSAGES UNKNOWN
  28. BETAMETHASONE [Suspect]
     Active Substance: BETAMETHASONE
     Dosage: NUMBER OF SEPARATE DOSAGES UNKNOWN
  29. CORONAVIRUS(SARS-COV-2) RNA VACCINE [Concomitant]
     Dosage: DOSE UNKNOWN
  30. CORONAVIRUS(SARS-COV-2) RNA VACCINE [Concomitant]
     Dosage: DOSE UNKNOWN
     Route: 065
  31. CORONAVIRUS(SARS-COV-2) RNA VACCINE [Concomitant]
     Dosage: DOSE UNKNOWN
     Route: 065
  32. CORONAVIRUS(SARS-COV-2) RNA VACCINE [Concomitant]
     Dosage: DOSE UNKNOWN
  33. CORONAVIRUS(SARS-COV-2) RNA VACCINE [Concomitant]
     Dosage: DOSE UNKNOWN
     Route: 065
  34. CORONAVIRUS(SARS-COV-2) RNA VACCINE [Concomitant]
     Dosage: DOSE UNKNOWN
  35. CORONAVIRUS(SARS-COV-2) RNA VACCINE [Concomitant]
     Dosage: DOSE UNKNOWN
     Route: 065
  36. CORONAVIRUS(SARS-COV-2) RNA VACCINE [Concomitant]
     Dosage: DOSE UNKNOWN
  37. CORONAVIRUS(SARS-COV-2) RNA VACCINE [Concomitant]
     Dosage: DOSE UNKNOWN
     Route: 065
  38. CORONAVIRUS(SARS-COV-2) RNA VACCINE [Concomitant]
     Dosage: DOSE UNKNOWN
     Route: 065
  39. CORONAVIRUS(SARS-COV-2) RNA VACCINE [Concomitant]
     Dosage: DOSE UNKNOWN
  40. CORONAVIRUS(SARS-COV-2) RNA VACCINE [Concomitant]
     Dosage: DOSE UNKNOWN
  41. CORONAVIRUS(SARS-COV-2) RNA VACCINE [Concomitant]
     Dosage: DOSE UNKNOWN
     Route: 065
  42. CORONAVIRUS(SARS-COV-2) RNA VACCINE [Concomitant]
     Dosage: DOSE UNKNOWN
  43. CORONAVIRUS(SARS-COV-2) RNA VACCINE [Concomitant]
     Dosage: DOSE UNKNOWN
     Route: 065
  44. CORONAVIRUS(SARS-COV-2) RNA VACCINE [Concomitant]
     Dosage: DOSE UNKNOWN
  45. PLAQUENIL [Concomitant]
     Active Substance: HYDROXYCHLOROQUINE SULFATE
     Indication: Systemic lupus erythematosus
     Dosage: 200/400 MG, ALTERNATIVE-DAY DOSE
  46. PLAQUENIL [Concomitant]
     Active Substance: HYDROXYCHLOROQUINE SULFATE
     Dosage: 200/400 MG, ALTERNATIVE-DAY DOSE
  47. VONOPRAZAN FUMARATE [Concomitant]
     Active Substance: VONOPRAZAN FUMARATE
     Indication: Prophylaxis
     Dosage: NUMBER OF SEPARATE DOSAGES UNKNOWN
  48. VONOPRAZAN FUMARATE [Concomitant]
     Active Substance: VONOPRAZAN FUMARATE
     Dosage: NUMBER OF SEPARATE DOSAGES UNKNOWN
  49. SPIRONOLACTONE [Concomitant]
     Active Substance: SPIRONOLACTONE
     Indication: Systemic lupus erythematosus
     Dosage: NUMBER OF SEPARATE DOSAGES UNKNOWN
  50. SPIRONOLACTONE [Concomitant]
     Active Substance: SPIRONOLACTONE
     Dosage: NUMBER OF SEPARATE DOSAGES UNKNOWN
  51. CYMBALTA [Concomitant]
     Active Substance: DULOXETINE HYDROCHLORIDE
     Indication: Fibromyalgia
     Dosage: NUMBER OF SEPARATE DOSAGES UNKNOWN
  52. CYMBALTA [Concomitant]
     Active Substance: DULOXETINE HYDROCHLORIDE
     Dosage: NUMBER OF SEPARATE DOSAGES UNKNOWN
  53. CORTRIL [Concomitant]
     Active Substance: HYDROCORTISONE
     Indication: Systemic lupus erythematosus
     Dosage: NUMBER OF SEPARATE DOSAGES UNKNOWN
  54. CORTRIL [Concomitant]
     Active Substance: HYDROCORTISONE
     Dosage: NUMBER OF SEPARATE DOSAGES UNKNOWN
  55. TRAMCET [Concomitant]
     Active Substance: ACETAMINOPHEN\TRAMADOL
     Indication: Fibromyalgia
     Dosage: NUMBER OF SEPARATE DOSAGES UNKNOWN
  56. TRAMCET [Concomitant]
     Active Substance: ACETAMINOPHEN\TRAMADOL
     Dosage: NUMBER OF SEPARATE DOSAGES UNKNOWN
  57. ZOLPIDEM TARTRATE [Concomitant]
     Active Substance: ZOLPIDEM TARTRATE
     Indication: Insomnia
     Dosage: NUMBER OF SEPARATE DOSAGES UNKNOWN
  58. ZOLPIDEM TARTRATE [Concomitant]
     Active Substance: ZOLPIDEM TARTRATE
     Dosage: NUMBER OF SEPARATE DOSAGES UNKNOWN

REACTIONS (3)
  - Erysipelas [Recovered/Resolved]
  - Bronchitis [Recovered/Resolved]
  - Off label use [Unknown]
